FAERS Safety Report 6765028-5 (Version None)
Quarter: 2010Q2

REPORT INFORMATION
  Report Type: 
  Country: None (occurrence: None)
  Receive Date: 20100610
  Receipt Date: 20100607
  Transmission Date: 20101027
  Serious: Yes (Hospitalization, Disabling)
  Sender: FDA-Public Use
  Company Number: US-MERCK-0911USA02013

PATIENT
  Age: 57 Year
  Sex: Female
  Weight: 84 kg

DRUGS (5)
  1. FOSAMAX [Suspect]
     Indication: OSTEOPOROSIS PROPHYLAXIS
     Route: 048
     Dates: start: 20000101, end: 20010331
  2. FOSAMAX [Suspect]
     Route: 048
     Dates: start: 20010321, end: 20071203
  3. FOSAMAX [Suspect]
     Route: 048
     Dates: start: 20080101, end: 20090311
  4. ALENDRONATE SODIUM [Suspect]
     Route: 048
     Dates: start: 20071203, end: 20090311
  5. FOSAMAX PLUS D [Suspect]
     Route: 048

REACTIONS (11)
  - ANXIETY [None]
  - BLOOD CHOLESTEROL INCREASED [None]
  - CHOLECYSTECTOMY [None]
  - DEPRESSION [None]
  - FEMUR FRACTURE [None]
  - GASTROINTESTINAL DISORDER [None]
  - HYPERTENSION [None]
  - LOW TURNOVER OSTEOPATHY [None]
  - RETINAL DISORDER [None]
  - TOOTH FRACTURE [None]
  - TRANSIENT ISCHAEMIC ATTACK [None]
